FAERS Safety Report 25031954 (Version 1)
Quarter: 2025Q1

REPORT INFORMATION
  Report Type: Spontaneous
  Country: US (occurrence: US)
  Receive Date: 20250303
  Receipt Date: 20250303
  Transmission Date: 20250408
  Serious: Yes (Other)
  Sender: DR REDDYS
  Company Number: None

PATIENT
  Age: 61 Year
  Sex: Female

DRUGS (9)
  1. GEMCITABINE [Suspect]
     Active Substance: GEMCITABINE
     Indication: Pancreatic carcinoma metastatic
     Dosage: DAY 1
     Route: 042
     Dates: start: 20200113, end: 2020
  2. GEMCITABINE [Suspect]
     Active Substance: GEMCITABINE
     Indication: Disease progression
     Dosage: DECREASED ON SOME OCCASIONS
     Route: 042
     Dates: start: 2020, end: 20200928
  3. GEMCITABINE [Suspect]
     Active Substance: GEMCITABINE
     Dosage: DECREASED ON SOME OCCASIONS
     Route: 042
     Dates: start: 2020, end: 20200928
  4. ABRAXANE [Suspect]
     Active Substance: PACLITAXEL
     Indication: Pancreatic carcinoma metastatic
     Dosage: DAY 1
     Route: 042
     Dates: start: 20200113, end: 2020
  5. ABRAXANE [Suspect]
     Active Substance: PACLITAXEL
     Indication: Disease progression
     Dosage: DECREASED
     Route: 042
     Dates: start: 2020, end: 20200928
  6. ANKTIVA [Suspect]
     Active Substance: NOGAPENDEKIN ALFA INBAKICEPT-PMLN
     Indication: Pancreatic carcinoma metastatic
     Dosage: DAY 3: 1-WEEK CYCLE
     Route: 058
     Dates: start: 20200116, end: 20211118
  7. ANKTIVA [Suspect]
     Active Substance: NOGAPENDEKIN ALFA INBAKICEPT-PMLN
     Indication: Metastases to liver
  8. ALDOXORUBICIN [Suspect]
     Active Substance: ALDOXORUBICIN
     Indication: Pancreatic carcinoma metastatic
     Dosage: DAY 3: STARTING: 1-WEEK CYCLE
     Dates: start: 20200116, end: 2020
  9. ALDOXORUBICIN [Suspect]
     Active Substance: ALDOXORUBICIN
     Indication: Disease progression
     Dates: start: 2020, end: 20211118

REACTIONS (2)
  - Neutropenia [Unknown]
  - Anaemia [Unknown]

NARRATIVE: CASE EVENT DATE: 20200201
